FAERS Safety Report 5815305-7 (Version None)
Quarter: 2008Q3

REPORT INFORMATION
  Report Type: 
  Country: None (occurrence: None)
  Receive Date: 20080718
  Receipt Date: 20080709
  Transmission Date: 20090109
  Serious: Yes (Hospitalization, Other)
  Sender: FDA-Public Use
  Company Number: US-PFIZER INC-2008010225

PATIENT
  Sex: Female

DRUGS (6)
  1. LYRICA [Suspect]
     Indication: FIBROMYALGIA
     Dates: start: 20071101, end: 20071201
  2. DEPAKOTE [Concomitant]
  3. VALIUM [Concomitant]
  4. COGENTIN [Concomitant]
  5. GEODON [Concomitant]
  6. AMBIEN [Concomitant]

REACTIONS (2)
  - AMMONIA INCREASED [None]
  - ENCEPHALITIS [None]
